FAERS Safety Report 25492172 (Version 2)
Quarter: 2025Q3

REPORT INFORMATION
  Report Type: Spontaneous
  Country: US (occurrence: US)
  Receive Date: 20250630
  Receipt Date: 20250703
  Transmission Date: 20251021
  Serious: Yes (Other)
  Sender: ROCHE
  Company Number: US-ROCHE-10000324949

PATIENT
  Age: 18 Year
  Sex: Male

DRUGS (2)
  1. XOLAIR PFS [Suspect]
     Active Substance: OMALIZUMAB
     Indication: Food allergy
     Dosage: (STRENGTH REPORTED AS: 150 MG/ML)
     Route: 058
     Dates: start: 202505
  2. XOLAIR PFS [Suspect]
     Active Substance: OMALIZUMAB
     Indication: Food allergy

REACTIONS (1)
  - Anaphylactic reaction [Unknown]

NARRATIVE: CASE EVENT DATE: 20250611
